FAERS Safety Report 6454139-X (Version None)
Quarter: 2009Q4

REPORT INFORMATION
  Report Type: 
  Country: None (occurrence: None)
  Receive Date: 20091117
  Receipt Date: 20091112
  Transmission Date: 20100525
  Serious: Yes (Death)
  Sender: FDA-Public Use
  Company Number: 2009SP027789

PATIENT
  Age: 77 Year
  Sex: Female

DRUGS (2)
  1. TEMODAR [Suspect]
     Indication: BRAIN NEOPLASM
     Dosage: 140 MG; QD; PO
     Route: 048
  2. DEXAMETHASONE TAB [Concomitant]

REACTIONS (1)
  - UNEVALUABLE EVENT [None]
